FAERS Safety Report 4340850-3 (Version None)
Quarter: 2004Q2

REPORT INFORMATION
  Report Type: 
  Country: None (occurrence: None)
  Receive Date: 20040413
  Receipt Date: 20040401
  Transmission Date: 20050107
  Serious: Yes (Other)
  Sender: FDA-Public Use
  Company Number: 2004007361

PATIENT
  Age: 75 Year
  Sex: Female
  Weight: 79.3795 kg

DRUGS (3)
  1. LIPITOR [Suspect]
     Indication: BLOOD CHOLESTEROL INCREASED
     Dosage: 10 MG (DAILY), ORAL
     Route: 048
  2. TELMISARTAN  (TELMISARTAN) [Concomitant]
  3. AMLODIPINE BESYLATE [Concomitant]

REACTIONS (5)
  - CHOLELITHIASIS [None]
  - FEELING ABNORMAL [None]
  - HEPATIC CYST [None]
  - HYPERTENSION [None]
  - POST PROCEDURAL PAIN [None]
